FAERS Safety Report 5421161-1 (Version None)
Quarter: 2007Q3

REPORT INFORMATION
  Report Type: 
  Country: None (occurrence: None)
  Receive Date: 20070719
  Receipt Date: 20070425
  Transmission Date: 20080115
  Serious: Yes (Other)
  Sender: FDA-Public Use
  Company Number: HQWYE866226APR07

PATIENT
  Age: 79 Year
  Sex: Female
  Weight: 54.48 kg

DRUGS (5)
  1. ADVIL [Suspect]
     Indication: PAIN
     Dosage: 1 CAPSULE, 1 TIME, ORAL
     Route: 048
     Dates: start: 20070424, end: 20070424
  2. WARFARIN SODIUM [Concomitant]
  3. CLONAZEPAM [Concomitant]
  4. TRAMADOL HCL [Concomitant]
  5. NEXIUM [Concomitant]

REACTIONS (2)
  - DRUG ADMINISTRATION ERROR [None]
  - ORAL DISCOMFORT [None]
